FAERS Safety Report 10891702 (Version 1)
Quarter: 2015Q1

REPORT INFORMATION
  Report Type: Spontaneous
  Country: KR (occurrence: KR)
  Receive Date: 20150306
  Receipt Date: 20150306
  Transmission Date: 20150721
  Serious: Yes (Death, Other)
  Sender: FDA-Public Use
  Company Number: KR-BAUSCH-BL-2015-004036

PATIENT
  Age: 66 Year
  Sex: Female

DRUGS (1)
  1. ALDARA [Suspect]
     Active Substance: IMIQUIMOD
     Indication: VULVAR DYSPLASIA
     Dosage: 3 TO 5 TIMES PER WEEK
     Route: 061

REACTIONS (2)
  - Squamous cell carcinoma of the cervix [Fatal]
  - Off label use [Unknown]
